FAERS Safety Report 7852633-8 (Version None)
Quarter: 2011Q4

REPORT INFORMATION
  Report Type: 
  Country: None (occurrence: None)
  Receive Date: 20111026
  Receipt Date: 20111018
  Transmission Date: 20120403
  Serious: Yes (Congenital Anomaly)
  Sender: FDA-Public Use
  Company Number: US-GLAXOSMITHKLINE-A0950471A

PATIENT
  Sex: Male

DRUGS (1)
  1. PAXIL CR [Suspect]
     Indication: PRODUCT USED FOR UNKNOWN INDICATION
     Dosage: 25MG UNKNOWN

REACTIONS (11)
  - COARCTATION OF THE AORTA [None]
  - TALIPES [None]
  - CONGENITAL CYSTIC KIDNEY DISEASE [None]
  - HYPERTENSION [None]
  - ASTHMA [None]
  - BICUSPID AORTIC VALVE [None]
  - LEFT VENTRICULAR HYPERTROPHY [None]
  - RENAL DYSPLASIA [None]
  - SCOLIOSIS [None]
  - MATERNAL EXPOSURE DURING PREGNANCY [None]
  - LIMB ASYMMETRY [None]
